FAERS Safety Report 8083364-X (Version None)
Quarter: 2012Q1

REPORT INFORMATION
  Report Type: 
  Country: None (occurrence: None)
  Receive Date: 20120127
  Receipt Date: 20110112
  Transmission Date: 20120608
  Serious: Yes (Hospitalization)
  Sender: FDA-Public Use
  Company Number: US-ABBOTT-11P-163-0697648-00

PATIENT
  Sex: Female
  Weight: 136.2 kg

DRUGS (4)
  1. ROXICODONE [Concomitant]
     Indication: BREAKTHROUGH PAIN
  2. HUMIRA [Suspect]
     Indication: PSORIASIS
     Route: 058
     Dates: start: 20080101
  3. LANTUS [Concomitant]
     Indication: PRODUCT USED FOR UNKNOWN INDICATION
  4. HYDROMORPHONE HCL [Concomitant]
     Indication: PRODUCT USED FOR UNKNOWN INDICATION

REACTIONS (7)
  - PAIN IN EXTREMITY [None]
  - GAIT DISTURBANCE [None]
  - SKIN FISSURES [None]
  - SCAR [None]
  - STAPHYLOCOCCAL INFECTION [None]
  - INJECTION SITE PAIN [None]
  - PSORIASIS [None]
